FAERS Safety Report 14099124 (Version 1)
Quarter: 2017Q4

REPORT INFORMATION
  Report Type: Report from Study
  Country: RU (occurrence: RU)
  Receive Date: 20171017
  Receipt Date: 20171017
  Transmission Date: 20180321
  Serious: Yes (Other)
  Sender: FDA-Public Use
  Company Number: RU-JNJFOC-20171010371

PATIENT

DRUGS (1)
  1. INFLIXIMAB, RECOMBINANT [Suspect]
     Active Substance: INFLIXIMAB
     Indication: JUVENILE SPONDYLOARTHRITIS
     Route: 042

REACTIONS (8)
  - Tuberculosis [Unknown]
  - Infusion related reaction [Unknown]
  - Product use in unapproved indication [Unknown]
  - Skin disorder [Unknown]
  - Psoriasis [Unknown]
  - Drug ineffective [Unknown]
  - Hepatitis toxic [Unknown]
  - Off label use [Unknown]
